FAERS Safety Report 4452491-8 (Version None)
Quarter: 2004Q3

REPORT INFORMATION
  Report Type: 
  Country: None (occurrence: None)
  Receive Date: 20040916
  Receipt Date: 20040824
  Transmission Date: 20050211
  Serious: Yes (Hospitalization)
  Sender: FDA-Public Use
  Company Number: MK200408-0258-1

PATIENT
  Age: 39 Year
  Sex: Male

DRUGS (10)
  1. ANAFRANIL [Suspect]
     Indication: DEPRESSION
     Dosage: 150 MG, DAILY
     Dates: end: 20040724
  2. DAONIL [Concomitant]
  3. BASEN [Concomitant]
  4. AKINETON [Concomitant]
  5. DEAS [Concomitant]
  6. ROHYPNOL [Concomitant]
  7. ZOLPIDEM TARTRATE [Concomitant]
  8. RISPERDAL [Suspect]
  9. WINTERMIN [Suspect]
  10. LUVOX [Suspect]

REACTIONS (19)
  - ASPARTATE AMINOTRANSFERASE INCREASED [None]
  - BLOOD PRESSURE SYSTOLIC INCREASED [None]
  - COLD SWEAT [None]
  - DEHYDRATION [None]
  - DYSPNOEA [None]
  - ERYTHEMA [None]
  - HEART RATE INCREASED [None]
  - HYPERHIDROSIS [None]
  - HYPERTHERMIA [None]
  - HYPERVENTILATION [None]
  - HYPOAESTHESIA [None]
  - MYOGLOBINURIA [None]
  - NEUROLEPTIC MALIGNANT SYNDROME [None]
  - PALPITATIONS [None]
  - PANIC DISORDER [None]
  - TACHYPNOEA [None]
  - THIRST [None]
  - TREMOR [None]
  - WHITE BLOOD CELL COUNT INCREASED [None]
